FAERS Safety Report 4951003-X (Version None)
Quarter: 2006Q1

REPORT INFORMATION
  Report Type: 
  Country: None (occurrence: None)
  Receive Date: 20060322
  Receipt Date: 20020118
  Transmission Date: 20060701
  Serious: Yes (Hospitalization, Other)
  Sender: FDA-Public Use
  Company Number: GB-ABBOTT-02P-167-0115279-00

PATIENT
  Age: 62 Year
  Sex: Female

DRUGS (2)
  1. BIAXIN [Suspect]
     Indication: LOWER RESPIRATORY TRACT INFECTION
     Route: 048
  2. WARFARIN SODIUM [Interacting]

REACTIONS (7)
  - CHOROIDAL HAEMORRHAGE [None]
  - DRUG INTERACTION [None]
  - HYPHAEMA [None]
  - INTERNATIONAL NORMALISED RATIO INCREASED [None]
  - LOWER RESPIRATORY TRACT INFECTION [None]
  - PYREXIA [None]
  - VISUAL ACUITY REDUCED [None]
